FAERS Safety Report 15986926 (Version 1)
Quarter: 2019Q1

REPORT INFORMATION
  Report Type: Report from Study
  Country: IT (occurrence: IT)
  Receive Date: 20190220
  Receipt Date: 20190220
  Transmission Date: 20190418
  Serious: Yes (Other)
  Sender: FDA-Public Use
  Company Number: IT-PFIZER INC-2019070331

PATIENT

DRUGS (5)
  1. IRINOTECAN HCL [Suspect]
     Active Substance: IRINOTECAN HYDROCHLORIDE
     Indication: RECTAL ADENOCARCINOMA
     Dosage: 165 MG/M2, CYCLIC (OVER 1 H) (CYCLES REPEATED EVERY 2 WEEKS FOR 6 CYCLES.)
  2. OXALIPLATIN. [Suspect]
     Active Substance: OXALIPLATIN
     Indication: RECTAL ADENOCARCINOMA
     Dosage: 85 MG/M2, CYCLIC (CYCLES REPEATED EVERY 2 WEEKS FOR 6 CYCLES.)
  3. FLUOROURACIL. [Suspect]
     Active Substance: FLUOROURACIL
     Indication: RECTAL ADENOCARCINOMA
     Dosage: 3200 MG/M2, CYCLIC (48-H CONTINUOUS INFUSION STARTING ON DAY 1; CYCLES REPEATED EVERY 2 WEEKS)
  4. CALCIUM FOLINATE [Suspect]
     Active Substance: LEUCOVORIN CALCIUM
     Indication: RECTAL ADENOCARCINOMA
     Dosage: 200 MG/M2, CYCLIC (OVER 2 H ON DAY 1, CYCLES REPEATED EVERY 2 WEEKS FOR 6 CYCLES)
  5. BEVACIZUMAB. [Suspect]
     Active Substance: BEVACIZUMAB
     Indication: RECTAL ADENOCARCINOMA
     Dosage: 5 MG/KG, CYCLIC (OVER 30 MIN, CYCLES REPEATED EVERY 2 WEEKS FOR 6 CYCLES)
     Route: 042

REACTIONS (1)
  - Acute kidney injury [Recovered/Resolved]
